FAERS Safety Report 6104120-5 (Version None)
Quarter: 2009Q1

REPORT INFORMATION
  Report Type: 
  Country: None (occurrence: None)
  Receive Date: 20090305
  Receipt Date: 20090225
  Transmission Date: 20090719
  Serious: Yes (Disabling)
  Sender: FDA-Public Use
  Company Number: GB-TEVA-186204ISR

PATIENT
  Age: 87 Year
  Sex: Female

DRUGS (3)
  1. AMIODARONE HCL [Suspect]
     Indication: ATRIAL FIBRILLATION
     Route: 048
     Dates: start: 20081202
  2. AMIODARONE HCL [Suspect]
     Dates: start: 20081118, end: 20081120
  3. AMIODARONE HCL [Suspect]
     Route: 048
     Dates: start: 20081125, end: 20081216

REACTIONS (1)
  - CEREBRAL ATAXIA [None]
